FAERS Safety Report 8245433-0 (Version None)
Quarter: 2012Q1

REPORT INFORMATION
  Report Type: 
  Country: None (occurrence: None)
  Receive Date: 20120329
  Receipt Date: 20120320
  Transmission Date: 20120608
  Serious: Yes (Hospitalization, Other)
  Sender: FDA-Public Use
  Company Number: US-ASTRAZENECA-2012SE03203

PATIENT
  Age: 70 Year
  Sex: Male

DRUGS (16)
  1. VITAMIN TAB [Concomitant]
  2. LOPRESSOR [Concomitant]
     Route: 048
  3. LISINOPRIL [Suspect]
     Route: 048
  4. ATENOLOL [Concomitant]
  5. LOVASTATIN [Concomitant]
     Route: 048
  6. METFORMIN HCL [Concomitant]
     Route: 048
  7. NEXIUM [Suspect]
     Route: 048
  8. POTASSIUM [Concomitant]
  9. ASPIRIN [Concomitant]
     Route: 048
  10. PROTONIX [Concomitant]
     Route: 048
  11. QUINAPRIL [Concomitant]
  12. AMARYL [Concomitant]
     Route: 048
  13. PERCOCET [Concomitant]
     Indication: PAIN
     Dosage: 5MG ONE TO TWO TABLETS P.O Q4H PRN
     Route: 048
  14. FISH OIL [Concomitant]
  15. DIGOXIN [Concomitant]
     Dosage: 0.25 EVERY DAY
  16. PLAVIX [Concomitant]

REACTIONS (13)
  - HYPERTENSION [None]
  - CHRONIC OBSTRUCTIVE PULMONARY DISEASE [None]
  - CARDIAC FAILURE CONGESTIVE [None]
  - ASTHMA [None]
  - GASTROOESOPHAGEAL REFLUX DISEASE [None]
  - CORONARY ARTERY DISEASE [None]
  - ATRIAL FIBRILLATION [None]
  - CHEST PAIN [None]
  - LEFT VENTRICULAR END-DIASTOLIC PRESSURE INCREASED [None]
  - MITRAL VALVE INCOMPETENCE [None]
  - HYPERCHOLESTEROLAEMIA [None]
  - DYSLIPIDAEMIA [None]
  - TYPE 2 DIABETES MELLITUS [None]
